FAERS Safety Report 10077151 (Version 4)
Quarter: 2015Q1

REPORT INFORMATION
  Report Type: Report from Study
  Country: CA (occurrence: CA)
  Receive Date: 20140414
  Receipt Date: 20150212
  Transmission Date: 20150720
  Serious: Yes (Other)
  Sender: FDA-Public Use
  Company Number: PHHY2013CA042927

PATIENT
  Age: 65 Year
  Sex: Female

DRUGS (7)
  1. VENTOLINE [Concomitant]
     Active Substance: ALBUTEROL
     Indication: PRODUCT USED FOR UNKNOWN INDICATION
     Route: 065
  2. NEXIUM 1-2-3 [Concomitant]
     Active Substance: AMOXICILLIN\CLARITHROMYCIN\ESOMEPRAZOLE
     Indication: PRODUCT USED FOR UNKNOWN INDICATION
     Route: 065
  3. ALLOPURINOL. [Concomitant]
     Active Substance: ALLOPURINOL
     Indication: PRODUCT USED FOR UNKNOWN INDICATION
     Route: 065
  4. CELEBREX [Concomitant]
     Active Substance: CELECOXIB
     Indication: PRODUCT USED FOR UNKNOWN INDICATION
     Route: 065
  5. ENSURE [Concomitant]
     Active Substance: AMINO ACIDS\DEXTROSE\ELECTROLYTES NOS\SOYBEAN OIL\VITAMINS
     Indication: PRODUCT USED FOR UNKNOWN INDICATION
  6. GLEEVEC [Suspect]
     Active Substance: IMATINIB MESYLATE
     Dosage: 400 MG, QD
     Route: 048
     Dates: start: 20140218
  7. GLEEVEC [Suspect]
     Active Substance: IMATINIB MESYLATE
     Indication: CHRONIC MYELOID LEUKAEMIA
     Dosage: 400 MG, QD
     Route: 048
     Dates: start: 20130320, end: 20140119

REACTIONS (20)
  - Fatigue [Recovering/Resolving]
  - Asthma [Recovering/Resolving]
  - Hypophagia [Recovering/Resolving]
  - Dysgeusia [Recovering/Resolving]
  - Headache [Recovering/Resolving]
  - Weight decreased [Recovering/Resolving]
  - Visual impairment [Recovering/Resolving]
  - Feeling cold [Recovering/Resolving]
  - Pruritus [Recovering/Resolving]
  - Influenza like illness [Recovering/Resolving]
  - Impaired healing [Recovering/Resolving]
  - Nausea [Recovering/Resolving]
  - Arthritis [Recovering/Resolving]
  - Vision blurred [Recovering/Resolving]
  - Seasonal allergy [Recovering/Resolving]
  - Cough [Recovering/Resolving]
  - Dry skin [Recovering/Resolving]
  - Lower respiratory tract infection [Recovering/Resolving]
  - Arthralgia [Recovering/Resolving]
  - Acrochordon [Recovering/Resolving]

NARRATIVE: CASE EVENT DATE: 201303
